FAERS Safety Report 6217996-8 (Version None)
Quarter: 2009Q2

REPORT INFORMATION
  Report Type: 
  Country: None (occurrence: None)
  Receive Date: 20090608
  Receipt Date: 20090528
  Transmission Date: 20091009
  Serious: Yes (Other)
  Sender: FDA-Public Use
  Company Number: US-JNJFOC-20090403244

PATIENT
  Sex: Female
  Weight: 72.12 kg

DRUGS (7)
  1. REMICADE [Suspect]
     Route: 042
  2. REMICADE [Suspect]
     Indication: CROHN'S DISEASE
     Route: 042
  3. LOMOTIL [Concomitant]
  4. FOLIC ACID [Concomitant]
  5. MULTI-VITAMIN [Concomitant]
  6. DIOVAN [Concomitant]
  7. LORTAB [Concomitant]
     Indication: PAIN

REACTIONS (2)
  - LEUKOCYTOCLASTIC VASCULITIS [None]
  - STREPTOCOCCAL IDENTIFICATION TEST POSITIVE [None]
